FAERS Safety Report 6461026-X (Version None)
Quarter: 2009Q4

REPORT INFORMATION
  Report Type: 
  Country: None (occurrence: None)
  Receive Date: 20091130
  Receipt Date: 20091123
  Transmission Date: 20100525
  Serious: Yes (Other)
  Sender: FDA-Public Use
  Company Number: B0456365A

PATIENT
  Age: 32 Year
  Sex: Male

DRUGS (10)
  1. PLACEBO [Suspect]
     Indication: HIV INFECTION
     Route: 048
     Dates: start: 20060918
  2. COMBIVIR [Suspect]
     Indication: HIV INFECTION
     Dosage: 1TAB TWICE PER DAY
     Route: 048
     Dates: start: 20061113, end: 20061213
  3. EFAVIRENZ [Suspect]
     Indication: HIV INFECTION
     Dosage: 600MG PER DAY
     Route: 048
     Dates: start: 20061113, end: 20061213
  4. RIFAMPICIN [Suspect]
     Indication: TUBERCULOSIS
     Dates: end: 20061213
  5. ISONIAZID [Suspect]
     Indication: TUBERCULOSIS
     Dates: end: 20061213
  6. PYRAZINAMIDE [Suspect]
     Indication: TUBERCULOSIS
     Dates: end: 20061213
  7. COTRIMOXAZOLE [Suspect]
     Indication: TUBERCULOSIS
  8. ETHAMBUTOL HYDROCHLORIDE [Concomitant]
     Indication: TUBERCULOSIS
  9. VITAMIN B1 B6 B12 [Concomitant]
  10. STREPTOMYCIN [Concomitant]

REACTIONS (4)
  - HEPATITIS [None]
  - HYPERBILIRUBINAEMIA [None]
  - VOMITING [None]
  - WEIGHT DECREASED [None]
